FAERS Safety Report 9222685 (Version 1)
Quarter: 2013Q1

REPORT INFORMATION
  Report Type: Spontaneous
  Country: US (occurrence: US)
  Receive Date: 20120914
  Receipt Date: 20120914
  Transmission Date: 20140127
  Serious: Yes (Other)
  Sender: FDA-Public Use
  Company Number: JPI-P-021271

PATIENT
  Age: 71 Year
  Sex: Male
  Weight: 113.4 kg

DRUGS (4)
  1. XYREM (500 MG/ML SOLUTION)(SODIUM OXYBATE) [Suspect]
     Indication: CATAPLEXY
     Dosage: TWO DOSES OF 2.25 GM TAKEN NIGHTLY/AT BEDTIME.
     Route: 048
     Dates: start: 20120501, end: 20120501
  2. MODAFINIL [Concomitant]
  3. ASPIRIN [Concomitant]
  4. FAMOTIDINE [Concomitant]

REACTIONS (3)
  - Blood pressure increased [None]
  - Neck pain [None]
  - Somnolence [None]
